FAERS Safety Report 12931466 (Version 2)
Quarter: 2017Q1

REPORT INFORMATION
  Report Type: Spontaneous
  Country: TR (occurrence: TR)
  Receive Date: 20161110
  Receipt Date: 20170113
  Transmission Date: 20170428
  Serious: Yes (Death)
  Sender: FDA-Public Use
  Company Number: TR-ACTELION-A-US2016-145430

PATIENT
  Age: 46 Year
  Sex: Female

DRUGS (1)
  1. VENTAVIS [Suspect]
     Active Substance: ILOPROST
     Indication: PULMONARY HYPERTENSION
     Dosage: UNK
     Route: 055

REACTIONS (5)
  - Myocardial infarction [Fatal]
  - Flatulence [Fatal]
  - Drug ineffective [Unknown]
  - Device breakage [Unknown]
  - Drug dose omission [Unknown]
